FAERS Safety Report 15129698 (Version 8)
Quarter: 2019Q2

REPORT INFORMATION
  Report Type: Spontaneous
  Country: US (occurrence: US)
  Receive Date: 20180711
  Receipt Date: 20190527
  Transmission Date: 20190711
  Serious: Yes (Hospitalization, Other)
  Sender: FDA-Public Use
  Company Number: US-SA-2018SA179980

PATIENT
  Age: 42 Year
  Sex: Female

DRUGS (17)
  1. DUPIXENT [Suspect]
     Active Substance: DUPILUMAB
     Dosage: 150 MG/ML, QOW
     Route: 058
     Dates: start: 20180402
  2. ALLEGRA [Concomitant]
     Active Substance: FEXOFENADINE HYDROCHLORIDE
  3. MAGNESIUM [Concomitant]
     Active Substance: MAGNESIUM
  4. VITAMIN A NOS [Concomitant]
  5. OTEZLA [Concomitant]
     Active Substance: APREMILAST
  6. L-SERINE [Concomitant]
  7. DUPIXENT [Suspect]
     Active Substance: DUPILUMAB
     Dosage: 150 MG/ML,QOW
     Route: 058
     Dates: start: 201804
  8. TACROLIMUS. [Concomitant]
     Active Substance: TACROLIMUS
  9. EUCRISA [Concomitant]
     Active Substance: CRISABOROLE
  10. LEXAPRO [Concomitant]
     Active Substance: ESCITALOPRAM OXALATE
  11. COD LIVER [Concomitant]
     Active Substance: COD LIVER OIL
  12. DUPIXENT [Suspect]
     Active Substance: DUPILUMAB
     Indication: DERMATITIS ATOPIC
     Dosage: 150 MG/ML, QOW
     Route: 058
     Dates: start: 20170404
  13. DUPIXENT [Suspect]
     Active Substance: DUPILUMAB
     Dosage: 300 MG, QOW
  14. SYSTANE (HYPROMELLOSE 2910 (4000 MPA.S)) [Concomitant]
     Active Substance: HYPROMELLOSE 2910 (4000 MPA.S)
  15. VITAMIN E NOS [Concomitant]
     Active Substance: .ALPHA.-TOCOPHEROL
  16. HYDROXYZINE [Concomitant]
     Active Substance: HYDROXYZINE HYDROCHLORIDE
  17. ZYRTEC [Concomitant]
     Active Substance: CETIRIZINE HYDROCHLORIDE

REACTIONS (10)
  - Lacrimation increased [Not Recovered/Not Resolved]
  - Pruritus [Not Recovered/Not Resolved]
  - Condition aggravated [Unknown]
  - Dry eye [Unknown]
  - Skin irritation [Not Recovered/Not Resolved]
  - Dermatitis atopic [Not Recovered/Not Resolved]
  - Rash [Not Recovered/Not Resolved]
  - Hospitalisation [Not Recovered/Not Resolved]
  - Conjunctivitis [Unknown]
  - Malaise [Not Recovered/Not Resolved]

NARRATIVE: CASE EVENT DATE: 2018
